FAERS Safety Report 14989747 (Version 1)
Quarter: 2018Q2

REPORT INFORMATION
  Report Type: Spontaneous
  Country: GB (occurrence: GB)
  Receive Date: 20180608
  Receipt Date: 20180608
  Transmission Date: 20180711
  Serious: Yes (Disabling, Other)
  Sender: FDA-Public Use
  Company Number: PHHY2018GB016499

PATIENT
  Age: 61 Year
  Sex: Male
  Weight: 80.6 kg

DRUGS (1)
  1. IMATINIB [Suspect]
     Active Substance: IMATINIB
     Indication: CHRONIC MYELOID LEUKAEMIA
     Dosage: 600 MG, QD
     Route: 048
     Dates: start: 20161128, end: 20170923

REACTIONS (6)
  - Malaise [Recovering/Resolving]
  - Lethargy [Recovering/Resolving]
  - Fatigue [Recovering/Resolving]
  - Pain in extremity [Recovering/Resolving]
  - Product substitution issue [Unknown]
  - Peripheral sensory neuropathy [Recovering/Resolving]

NARRATIVE: CASE EVENT DATE: 20161128
